FAERS Safety Report 15892879 (Version 1)
Quarter: 2019Q1

REPORT INFORMATION
  Report Type: Report from Study
  Country: US (occurrence: US)
  Receive Date: 20190130
  Receipt Date: 20190130
  Transmission Date: 20190417
  Serious: No
  Sender: FDA-Public Use
  Company Number: US-EXELIXIS-CABO-18015698

PATIENT
  Sex: Male
  Weight: 63.49 kg

DRUGS (2)
  1. CABOMETYX [Suspect]
     Active Substance: CABOZANTINIB S-MALATE
     Indication: HEPATIC CANCER
     Dosage: 60 MG, QD (EVERY MORNING WITHOUT FOOD)
     Dates: start: 20180804, end: 2018
  2. CABOMETYX [Suspect]
     Active Substance: CABOZANTINIB S-MALATE
     Dosage: 40 MG, QD
     Dates: start: 2018

REACTIONS (12)
  - Coagulopathy [Unknown]
  - Off label use [Unknown]
  - Proteinuria [Unknown]
  - Nausea [Unknown]
  - Drug ineffective [Unknown]
  - Fatigue [Unknown]
  - Asthenia [Not Recovered/Not Resolved]
  - Oral pain [Not Recovered/Not Resolved]
  - Electrocardiogram QT prolonged [Unknown]
  - Weight decreased [Unknown]
  - Decreased appetite [Unknown]
  - Constipation [Unknown]

NARRATIVE: CASE EVENT DATE: 2018
